FAERS Safety Report 23739326 (Version 3)
Quarter: 2024Q2

REPORT INFORMATION
  Report Type: Spontaneous
  Country: FR (occurrence: FR)
  Receive Date: 20240413
  Receipt Date: 20240515
  Transmission Date: 20240716
  Serious: Yes (Other)
  Sender: FDA-Public Use
  Company Number: FR-MLMSERVICE-20240219-4840208-1

PATIENT
  Age: 59 Year
  Sex: Female

DRUGS (10)
  1. AMISULPRIDE [Suspect]
     Active Substance: AMISULPRIDE
     Indication: Psychotic disorder
     Dosage: TITRATED UP TO 400 MG DAILY
     Route: 065
     Dates: start: 2022, end: 2022
  2. AMISULPRIDE [Suspect]
     Active Substance: AMISULPRIDE
     Indication: Dementia with Lewy bodies
     Dosage: 400 MILLIGRAM, ONCE A DAY (TITRATED UP TO 400 MG DAILY)
     Route: 065
     Dates: start: 2022, end: 2022
  3. CLOZAPINE [Suspect]
     Active Substance: CLOZAPINE
     Indication: Dementia with Lewy bodies
     Dosage: UNK
     Route: 065
  4. CLOZAPINE [Suspect]
     Active Substance: CLOZAPINE
     Indication: Psychotic symptom
  5. QUETIAPINE [Suspect]
     Active Substance: QUETIAPINE
     Indication: Dementia with Lewy bodies
     Dosage: 550 MILLIGRAM, ONCE A DAY, TITRATED UP TO 550MG
     Route: 065
  6. QUETIAPINE [Suspect]
     Active Substance: QUETIAPINE
     Indication: Psychotic symptom
  7. RISPERIDONE [Suspect]
     Active Substance: RISPERIDONE
     Indication: Dementia with Lewy bodies
     Dosage: 2 MILLIGRAM
     Route: 065
  8. RISPERIDONE [Suspect]
     Active Substance: RISPERIDONE
     Indication: Dementia
  9. RIVASTIGMINE [Concomitant]
     Active Substance: RIVASTIGMINE
     Indication: Psychotic symptom
     Dosage: 9.2 MILLIGRAM, ONCE A DAY
     Route: 065
  10. LORAZEPAM [Concomitant]
     Active Substance: LORAZEPAM
     Indication: Psychotic symptom
     Dosage: 7 MILLIGRAM, ONCE A DAY
     Route: 065

REACTIONS (6)
  - Parkinsonism [Unknown]
  - Myocarditis [Unknown]
  - Motor dysfunction [Unknown]
  - Somnolence [Unknown]
  - Drug intolerance [Unknown]
  - Drug ineffective [Unknown]

NARRATIVE: CASE EVENT DATE: 20220101
